FAERS Safety Report 6110165-1 (Version None)
Quarter: 2009Q1

REPORT INFORMATION
  Report Type: 
  Country: None (occurrence: None)
  Receive Date: 20090309
  Receipt Date: 20090309
  Transmission Date: 20090719
  Serious: Yes (Other)
  Sender: FDA-Public Use
  Company Number: None

PATIENT
  Sex: Female
  Weight: 61.2356 kg

DRUGS (2)
  1. ACTONEL [Suspect]
     Indication: BONE DENSITY DECREASED
     Dosage: ONE TABLET IN A.M. W/6-8 OZ WA ONCE MONTHLY PO
     Route: 048
     Dates: start: 20090201, end: 20090227
  2. ACTONEL [Suspect]
     Indication: BONE DENSITY DECREASED
     Dosage: ONE TABLET IN A.M. W/6-8 OZ WA ONCE MONTHLY PO
     Route: 048
     Dates: start: 20090228, end: 20090301

REACTIONS (11)
  - ABDOMINAL DISCOMFORT [None]
  - ARTHRALGIA [None]
  - BONE PAIN [None]
  - DIARRHOEA [None]
  - ERYTHEMA [None]
  - FLUSHING [None]
  - HEADACHE [None]
  - MUSCULOSKELETAL STIFFNESS [None]
  - MYALGIA [None]
  - RASH [None]
  - SWELLING FACE [None]
